FAERS Safety Report 14994267 (Version 2)
Quarter: 2018Q2

REPORT INFORMATION
  Report Type: Report from Study
  Country: US (occurrence: US)
  Receive Date: 20180611
  Receipt Date: 20180614
  Transmission Date: 20180711
  Serious: Yes (Hospitalization)
  Sender: FDA-Public Use
  Company Number: US-ROCHE-2136569

PATIENT
  Age: 48 Year
  Sex: Female
  Weight: 55.84 kg

DRUGS (4)
  1. ATEZOLIZUMAB. [Suspect]
     Active Substance: ATEZOLIZUMAB
     Indication: BREAST CANCER STAGE IV
     Dosage: LAST DOSE PRIOR TO THE SAES (NEUTROPENIA, PNEUMONITIS AND COLITIS) ONSET RECEIVED ON 24/MAY/2018
     Route: 042
     Dates: start: 20180524
  2. DOCETAXEL. [Suspect]
     Active Substance: DOCETAXEL
     Indication: BREAST CANCER STAGE IV
     Dosage: LAST DOSE PRIOR TO THE SAES (NEUTROPENIA, PNEUMONITIS AND COLITIS) ONSET RECEIVED ON 24/MAY/2018
     Route: 042
     Dates: start: 20180524
  3. PERTUZUMAB. [Suspect]
     Active Substance: PERTUZUMAB
     Indication: BREAST CANCER STAGE IV
     Dosage: LOADING DOSE?LAST DOSE PRIOR TO THE SAES (NEUTROPENIA, PNEUMONITIS AND COLITIS) ONSET RECEIVED ON 24
     Route: 042
     Dates: start: 20180524
  4. TRASTUZUMAB. [Suspect]
     Active Substance: TRASTUZUMAB
     Indication: BREAST CANCER STAGE IV
     Dosage: LOADING DOSE?LAST DOSE PRIOR TO THE SAES (NEUTROPENIA, PNEUMONITIS AND COLITIS) ONSET RECEIVED ON 24
     Route: 042
     Dates: start: 20180524

REACTIONS (3)
  - Febrile neutropenia [Not Recovered/Not Resolved]
  - Colitis [Not Recovered/Not Resolved]
  - Pneumonitis [Not Recovered/Not Resolved]

NARRATIVE: CASE EVENT DATE: 20180601
